FAERS Safety Report 7776355-7 (Version None)
Quarter: 2011Q3

REPORT INFORMATION
  Report Type: 
  Country: None (occurrence: None)
  Receive Date: 20110926
  Receipt Date: 20110912
  Transmission Date: 20111222
  Serious: Yes (Other)
  Sender: FDA-Public Use
  Company Number: GB-RANBAXY-2011R1-47790

PATIENT
  Age: 26 Year
  Sex: Male

DRUGS (6)
  1. QUETIAPINE [Concomitant]
     Indication: DEPRESSION
     Dosage: 150 MG, QD
     Route: 065
  2. FLUOXETINE [Suspect]
     Dosage: 60 MG, QD
     Route: 065
  3. SERTRALINE HYDROCHLORIDE [Concomitant]
     Indication: PRODUCT USED FOR UNKNOWN INDICATION
     Dosage: UNK
     Route: 065
  4. FLUOXETINE [Suspect]
     Indication: DEPRESSION
     Dosage: 20 MG, QD
     Route: 065
  5. FLUOXETINE [Suspect]
     Dosage: 80 MG, QD
     Route: 065
  6. FLUOXETINE [Suspect]
     Dosage: 40 MG, QD
     Route: 065

REACTIONS (1)
  - PSYCHOTIC DISORDER [None]
